FAERS Safety Report 15325239 (Version 8)
Quarter: 2020Q4

REPORT INFORMATION
  Report Type: Spontaneous
  Country: US (occurrence: US)
  Receive Date: 20180828
  Receipt Date: 20201106
  Transmission Date: 20210113
  Serious: Yes (Hospitalization)
  Sender: FDA-Public Use
  Company Number: US-PFIZER INC-2018342726

PATIENT
  Age: 55 Year
  Sex: Female

DRUGS (4)
  1. BOSULIF [Suspect]
     Active Substance: BOSUTINIB MONOHYDRATE
     Dosage: 300 MG, DAILY, (3 100 MG TABLETS DAILY)
     Dates: end: 20191231
  2. BOSULIF [Suspect]
     Active Substance: BOSUTINIB MONOHYDRATE
     Dosage: 100 MG, UNK
  3. BOSULIF [Suspect]
     Active Substance: BOSUTINIB MONOHYDRATE
     Indication: CHRONIC MYELOID LEUKAEMIA
     Dosage: 4 TABLETS (400 MG) DAILY
  4. BOSULIF [Suspect]
     Active Substance: BOSUTINIB MONOHYDRATE
     Dosage: 300 MG, UNK

REACTIONS (9)
  - Feeling abnormal [Unknown]
  - Blood test abnormal [Unknown]
  - Illness [Unknown]
  - Fatigue [Unknown]
  - Somnolence [Unknown]
  - Cardiac disorder [Unknown]
  - Dyspnoea [Unknown]
  - Influenza [Unknown]
  - Nasopharyngitis [Unknown]
